FAERS Safety Report 9859365 (Version 1)
Quarter: 2014Q1

REPORT INFORMATION
  Report Type: Spontaneous
  Country: US (occurrence: US)
  Receive Date: 20140131
  Receipt Date: 20140131
  Transmission Date: 20141002
  Serious: No
  Sender: FDA-Public Use
  Company Number: US-BAYER-2014-014756

PATIENT
  Sex: Female

DRUGS (2)
  1. BAYER GENUINE ASPIRIN ORIGINAL STRENGTH [Suspect]
     Dosage: UNK,DAILY
  2. ALEVE CAPLET [Suspect]
     Dosage: UNK,DAILY

REACTIONS (2)
  - Off label use [None]
  - Incorrect drug administration duration [None]
